FAERS Safety Report 11755654 (Version 4)
Quarter: 2016Q1

REPORT INFORMATION
  Report Type: Spontaneous
  Country: US (occurrence: US)
  Receive Date: 20151119
  Receipt Date: 20160217
  Transmission Date: 20160525
  Serious: Yes (Death, Other)
  Sender: FDA-Public Use
  Company Number: US-ASTRAZENECA-2012SE74540

PATIENT
  Age: 63 Year
  Sex: Male
  Weight: 99.8 kg

DRUGS (26)
  1. CRESTOR [Suspect]
     Active Substance: ROSUVASTATIN CALCIUM
     Indication: BLOOD CHOLESTEROL INCREASED
     Route: 048
     Dates: start: 20090923
  2. ISOSORBIDE DINITRATE. [Concomitant]
     Active Substance: ISOSORBIDE DINITRATE
     Dates: start: 20090923
  3. NIASPAN [Concomitant]
     Active Substance: NIACIN
     Dates: start: 20090923
  4. CEPHALEXIN. [Concomitant]
     Active Substance: CEPHALEXIN
     Dates: start: 20100412
  5. BICALUTAMIDE. [Concomitant]
     Active Substance: BICALUTAMIDE
     Dates: start: 20100525
  6. KLOR-CON [Concomitant]
     Active Substance: POTASSIUM CHLORIDE
     Dates: start: 20090923
  7. NEXIUM [Concomitant]
     Active Substance: ESOMEPRAZOLE MAGNESIUM
     Indication: GASTRIC PH DECREASED
     Dates: start: 20090923
  8. PLAVIX [Concomitant]
     Active Substance: CLOPIDOGREL BISULFATE
     Dates: start: 20090923
  9. CRESTOR [Suspect]
     Active Substance: ROSUVASTATIN CALCIUM
     Indication: BLOOD CHOLESTEROL INCREASED
     Route: 048
     Dates: start: 2003
  10. FLOMAX [Concomitant]
     Active Substance: TAMSULOSIN HYDROCHLORIDE
     Dates: start: 20091006
  11. NITROGLYCERIN. [Concomitant]
     Active Substance: NITROGLYCERIN
     Route: 060
     Dates: start: 20100625
  12. LANSOPRAZOLE. [Concomitant]
     Active Substance: LANSOPRAZOLE
     Dates: start: 20120517
  13. ASPIRIN. [Concomitant]
     Active Substance: ASPIRIN
     Dates: start: 20090923
  14. SERTRALINE HYDROCHLORIDE. [Concomitant]
     Active Substance: SERTRALINE HYDROCHLORIDE
     Dates: start: 20090923
  15. HYDRALAZINE HYDROCHLORIDE. [Concomitant]
     Active Substance: HYDRALAZINE HYDROCHLORIDE
     Dates: start: 20090923
  16. LEVAQUIN [Concomitant]
     Active Substance: LEVOFLOXACIN
     Dates: start: 20091012
  17. AVAPRO [Concomitant]
     Active Substance: IRBESARTAN
     Dates: start: 20091012
  18. TEMAZEPAM. [Concomitant]
     Active Substance: TEMAZEPAM
     Dates: start: 20130810
  19. PHENAZOPYRIDINE HYDROCHLORIDE. [Concomitant]
     Active Substance: PHENAZOPYRIDINE HYDROCHLORIDE
     Dates: start: 20091012
  20. CARVEDILOL. [Concomitant]
     Active Substance: CARVEDILOL
     Dates: start: 20090923
  21. FUROSEMIDE. [Concomitant]
     Active Substance: FUROSEMIDE
     Dates: start: 20090923
  22. AMLODIPINE [Concomitant]
     Active Substance: AMLODIPINE BESYLATE
     Dates: start: 20090923
  23. AVODART [Concomitant]
     Active Substance: DUTASTERIDE
     Dates: start: 20091104
  24. GABAPENTIN. [Concomitant]
     Active Substance: GABAPENTIN
     Dates: start: 20130722
  25. LOVAZA [Concomitant]
     Active Substance: OMEGA-3-ACID ETHYL ESTERS
     Dates: start: 20130921
  26. METHYLPREDNISOLONE. [Concomitant]
     Active Substance: METHYLPREDNISOLONE
     Dates: start: 20130722

REACTIONS (12)
  - Respiratory failure [Fatal]
  - Myocardial infarction [Not Recovered/Not Resolved]
  - Cardiac failure congestive [Not Recovered/Not Resolved]
  - Cardiomyopathy [Unknown]
  - Arrhythmia [Not Recovered/Not Resolved]
  - Hypertension [Not Recovered/Not Resolved]
  - Gastric pH decreased [Unknown]
  - Coronary artery disease [Unknown]
  - Cardiovascular disorder [Not Recovered/Not Resolved]
  - Angina pectoris [Not Recovered/Not Resolved]
  - Type 2 diabetes mellitus [Not Recovered/Not Resolved]
  - Prostate cancer metastatic [Fatal]

NARRATIVE: CASE EVENT DATE: 2009
